FAERS Safety Report 19303946 (Version 1)
Quarter: 2021Q2

REPORT INFORMATION
  Report Type: Spontaneous
  Country: US (occurrence: US)
  Receive Date: 20210525
  Receipt Date: 20210525
  Transmission Date: 20210717
  Serious: Yes (Other)
  Sender: FDA-Public Use
  Company Number: US-TEVA-2021-US-1914070

PATIENT
  Age: 73 Year
  Sex: Female
  Weight: 72.57 kg

DRUGS (1)
  1. ESTRADIOL TEVA [Suspect]
     Active Substance: ESTRADIOL
     Route: 065
     Dates: start: 20210331

REACTIONS (17)
  - Vulvovaginal pain [Unknown]
  - Abdominal discomfort [Unknown]
  - Withdrawal syndrome [Unknown]
  - Anxiety [Unknown]
  - Feeling abnormal [Unknown]
  - Ageusia [Unknown]
  - Libido decreased [Unknown]
  - Hot flush [Unknown]
  - Mental impairment [Unknown]
  - Sluggishness [Unknown]
  - Constipation [Unknown]
  - Vulvovaginal dryness [Unknown]
  - Appetite disorder [Unknown]
  - Crying [Unknown]
  - Memory impairment [Unknown]
  - Asthenia [Unknown]
  - Decreased interest [Unknown]

NARRATIVE: CASE EVENT DATE: 2021
